FAERS Safety Report 4514795-X (Version None)
Quarter: 2004Q4

REPORT INFORMATION
  Report Type: 
  Country: None (occurrence: None)
  Receive Date: 20041129
  Receipt Date: 20041129
  Transmission Date: 20050328
  Serious: Yes (Hospitalization)
  Sender: FDA-Public Use
  Company Number: None

PATIENT
  Age: 41 Year
  Sex: Male
  Weight: 98 kg

DRUGS (4)
  1. LEVOFLOXACIN [Suspect]
     Dates: start: 20041118, end: 20041123
  2. ALPRAZOLAM [Concomitant]
  3. LORTAB [Concomitant]
  4. NEXIUM [Concomitant]

REACTIONS (8)
  - ABDOMINAL TENDERNESS [None]
  - ENCEPHALOPATHY [None]
  - INCOHERENT [None]
  - LIVER FUNCTION TEST ABNORMAL [None]
  - LIVER TENDERNESS [None]
  - OEDEMA PERIPHERAL [None]
  - SWELLING [None]
  - WEIGHT INCREASED [None]
